FAERS Safety Report 18898105 (Version 1)
Quarter: 2021Q1

REPORT INFORMATION
  Report Type: Spontaneous
  Country: US (occurrence: US)
  Receive Date: 20210213
  Receipt Date: 20210213
  Transmission Date: 20210420
  Serious: Yes (Hospitalization)
  Sender: FDA-Public Use
  Company Number: None

PATIENT
  Age: 75 Year
  Sex: Female
  Weight: 69.9 kg

DRUGS (2)
  1. CARBOPLATIN. [Suspect]
     Active Substance: CARBOPLATIN
     Dates: end: 20210105
  2. ALIMTA [Suspect]
     Active Substance: PEMETREXED DISODIUM
     Dates: end: 20210105

REACTIONS (14)
  - Vomiting [None]
  - Blood potassium decreased [None]
  - Pancytopenia [None]
  - Rash [None]
  - Neutropenia [None]
  - Diarrhoea [None]
  - Blood magnesium decreased [None]
  - Colitis [None]
  - Blood calcium decreased [None]
  - Contusion [None]
  - Anaemia [None]
  - Electrolyte imbalance [None]
  - Blood phosphorus decreased [None]
  - Asthenia [None]

NARRATIVE: CASE EVENT DATE: 20210116
